FAERS Safety Report 5208832-7 (Version None)
Quarter: 2007Q1

REPORT INFORMATION
  Report Type: 
  Country: None (occurrence: None)
  Receive Date: 20070116
  Receipt Date: 20070104
  Transmission Date: 20070707
  Serious: Yes (Hospitalization)
  Sender: FDA-Public Use
  Company Number: US-BRISTOL-MYERS SQUIBB COMPANY-13632237

PATIENT
  Age: 68 Year
  Sex: Male

DRUGS (4)
  1. PRAVACHOL [Suspect]
     Indication: BLOOD CHOLESTEROL INCREASED
  2. PLAVIX [Suspect]
     Dates: start: 20060101, end: 20060201
  3. COUMADIN [Suspect]
     Route: 048
     Dates: start: 20060101
  4. ASPIRIN [Suspect]

REACTIONS (3)
  - CEREBROVASCULAR ACCIDENT [None]
  - GASTRIC HAEMORRHAGE [None]
  - MYOCARDIAL INFARCTION [None]
